FAERS Safety Report 5979847-6 (Version None)
Quarter: 2008Q4

REPORT INFORMATION
  Report Type: 
  Country: None (occurrence: None)
  Receive Date: 20081126
  Receipt Date: 20081118
  Transmission Date: 20090506
  Serious: Yes (Death)
  Sender: FDA-Public Use
  Company Number: 002064

PATIENT
  Age: 47 Year
  Sex: Female

DRUGS (8)
  1. BUSULFEX [Suspect]
     Indication: STEM CELL TRANSPLANT
     Dosage: 6  ML, DAILY DOSE,  INTRAVENOUS; 6  ML, QID,  INTRAVENOUS;  6  ML, TID,  INTRAVENOUS
     Route: 042
     Dates: start: 20070613, end: 20070613
  2. BUSULFEX [Suspect]
     Indication: STEM CELL TRANSPLANT
     Dosage: 6  ML, DAILY DOSE,  INTRAVENOUS; 6  ML, QID,  INTRAVENOUS;  6  ML, TID,  INTRAVENOUS
     Route: 042
     Dates: start: 20070614, end: 20070616
  3. BUSULFEX [Suspect]
     Indication: STEM CELL TRANSPLANT
     Dosage: 6  ML, DAILY DOSE,  INTRAVENOUS; 6  ML, QID,  INTRAVENOUS;  6  ML, TID,  INTRAVENOUS
     Route: 042
     Dates: start: 20070617, end: 20070617
  4. CYCLOPHOSPHAMIDE [Concomitant]
  5. VALPROATE SODIUM [Concomitant]
  6. NARTOGRASTIM (NARTOGRASTIM) [Concomitant]
  7. METHOTREXATE [Concomitant]
  8. TACROLIMUS [Concomitant]

REACTIONS (7)
  - ANOREXIA [None]
  - ASCITES [None]
  - DIARRHOEA [None]
  - GASTROINTESTINAL HAEMORRHAGE [None]
  - MALAISE [None]
  - MULTI-ORGAN FAILURE [None]
  - NAUSEA [None]
